FAERS Safety Report 7487102-0 (Version None)
Quarter: 2011Q2

REPORT INFORMATION
  Report Type: 
  Country: None (occurrence: None)
  Receive Date: 20110509
  Receipt Date: 20110427
  Transmission Date: 20111010
  Serious: Yes (Other)
  Sender: FDA-Public Use
  Company Number: 2011P1006191

PATIENT
  Age: 37 Year
  Sex: Male

DRUGS (14)
  1. ACETAMINOPHEN [Suspect]
     Indication: OROPHARYNGEAL PAIN
  2. FLUNITRAZEPAM [Concomitant]
  3. QUETIAPINE [Concomitant]
  4. LEVOMEPROMAZINE [Concomitant]
  5. LOXOPROFEN SODIUM [Concomitant]
  6. CARBAMAZEPINE [Suspect]
     Indication: DEPRESSION
  7. CIPROFLOXACIN HYDROCHLORIDE [Concomitant]
  8. RISPERIDONE [Concomitant]
  9. BIPERIDEN HYDROCHLORIDE TAB [Concomitant]
  10. DICLOFENAC SODIUM [Concomitant]
  11. SERRAPEPTASE [Concomitant]
  12. DIMEMORFAN PHOSPHATE [Concomitant]
  13. FUMARATE [Concomitant]
  14. MIGRENIN [Concomitant]

REACTIONS (9)
  - DRUG RASH WITH EOSINOPHILIA AND SYSTEMIC SYMPTOMS [None]
  - ASPARTATE AMINOTRANSFERASE INCREASED [None]
  - HEPATIC FUNCTION ABNORMAL [None]
  - GAMMA-GLUTAMYLTRANSFERASE INCREASED [None]
  - TOXIC EPIDERMAL NECROLYSIS [None]
  - ALANINE AMINOTRANSFERASE INCREASED [None]
  - ROSEOLOVIRUS TEST POSITIVE [None]
  - BLOOD LACTATE DEHYDROGENASE INCREASED [None]
  - LYMPHOCYTE STIMULATION TEST POSITIVE [None]
